FAERS Safety Report 24314285 (Version 2)
Quarter: 2024Q4

REPORT INFORMATION
  Report Type: Spontaneous
  Country: DE (occurrence: DE)
  Receive Date: 20240912
  Receipt Date: 20241001
  Transmission Date: 20250114
  Serious: Yes (Hospitalization, Other)
  Sender: BRISTOL MYERS SQUIBB
  Company Number: DE-BRISTOL-MYERS SQUIBB COMPANY-2024-104794

PATIENT
  Age: 80 Year
  Sex: Male
  Weight: 70 kg

DRUGS (2)
  1. ELIQUIS [Suspect]
     Active Substance: APIXABAN
     Indication: Cerebrovascular accident prophylaxis
     Route: 048
     Dates: start: 202305, end: 20240617
  2. ELIQUIS [Suspect]
     Active Substance: APIXABAN
     Indication: Atrial fibrillation
     Route: 048

REACTIONS (10)
  - Duodenal ulcer haemorrhage [Recovered/Resolved]
  - Haemodynamic instability [Unknown]
  - Hypotension [Unknown]
  - Glomerular filtration rate abnormal [Unknown]
  - Normochromic normocytic anaemia [Unknown]
  - Iron deficiency [Unknown]
  - Cardiac failure [Recovered/Resolved]
  - Coronary artery disease [Unknown]
  - Bowel movement irregularity [Unknown]
  - Circulatory collapse [Unknown]

NARRATIVE: CASE EVENT DATE: 20230101
